FAERS Safety Report 6835489-1 (Version None)
Quarter: 2010Q2

REPORT INFORMATION
  Report Type: 
  Country: None (occurrence: None)
  Receive Date: 20100520
  Receipt Date: 20090514
  Transmission Date: 20101027
  Serious: Yes (Other)
  Sender: FDA-Public Use
  Company Number: 2009214355

PATIENT
  Age: 60 Year
  Sex: Female

DRUGS (10)
  1. PROVERA [Suspect]
     Indication: HORMONE REPLACEMENT THERAPY
     Dosage: 10 MG, ORAL
     Route: 048
     Dates: start: 19900101, end: 20010101
  2. PROVERA [Suspect]
     Indication: MENOPAUSE
     Dosage: 10 MG, ORAL
     Route: 048
     Dates: start: 19900101, end: 20010101
  3. ESTRACE [Suspect]
     Indication: HORMONE REPLACEMENT THERAPY
     Dosage: 1 MG
     Dates: start: 19920101, end: 19930101
  4. ESTRACE [Suspect]
     Indication: MENOPAUSE
     Dosage: 1 MG
     Dates: start: 19920101, end: 19930101
  5. MEDROXYPROGESTERONE ACETATE [Suspect]
     Indication: HORMONE REPLACEMENT THERAPY
     Dosage: 10 MG
     Dates: start: 19900101, end: 20010101
  6. MEDROXYPROGESTERONE ACETATE [Suspect]
     Indication: MENOPAUSE
     Dosage: 10 MG
     Dates: start: 19900101, end: 20010101
  7. PREMARIN [Suspect]
     Indication: HORMONE REPLACEMENT THERAPY
     Dosage: 0.625 MG
     Dates: start: 19900101, end: 20010101
  8. PREMARIN [Suspect]
     Indication: MENOPAUSE
     Dosage: 0.625 MG
     Dates: start: 19900101, end: 20010101
  9. PREMPRO [Suspect]
     Indication: HORMONE REPLACEMENT THERAPY
     Dosage: 0.625/5MG
     Dates: start: 19900101, end: 20010101
  10. PREMPRO [Suspect]
     Indication: MENOPAUSE
     Dosage: 0.625/5MG
     Dates: start: 19900101, end: 20010101

REACTIONS (1)
  - BREAST CANCER [None]
